FAERS Safety Report 8625211-0 (Version None)
Quarter: 2012Q3

REPORT INFORMATION
  Report Type: 
  Country: None (occurrence: None)
  Receive Date: 20120827
  Receipt Date: 20120820
  Transmission Date: 20120928
  Serious: Yes (Hospitalization)
  Sender: FDA-Public Use
  Company Number: CH-BAXTER-2012BAX006365

PATIENT
  Sex: Female
  Weight: 87.7 kg

DRUGS (14)
  1. DOXORUBICIN HYDROCHLORIDE [Suspect]
     Indication: DIFFUSE LARGE B-CELL LYMPHOMA
     Route: 042
     Dates: start: 20111111
  2. PANTOPRAZOLE [Concomitant]
     Route: 065
  3. RITUXIMAB [Suspect]
     Dosage: CONCENTRATION 1/MG/ML
     Dates: start: 20111111
  4. EXFORGE HCT [Concomitant]
     Route: 065
  5. DIPYRONE INJ [Concomitant]
     Route: 065
     Dates: start: 20111101, end: 20120201
  6. BISOPROLOL FUMARATE [Concomitant]
     Route: 065
  7. CYCLOPHOSPHAMIDE [Suspect]
     Indication: DIFFUSE LARGE B-CELL LYMPHOMA
     Route: 042
     Dates: start: 20111111
  8. DOMPERIDON [Concomitant]
     Indication: NAUSEA
     Route: 065
     Dates: start: 20111101, end: 20120228
  9. RITUXIMAB [Suspect]
     Indication: DIFFUSE LARGE B-CELL LYMPHOMA
     Route: 042
     Dates: start: 20111111
  10. BACTRIM DS [Concomitant]
     Route: 065
  11. ACETAMINOPHEN [Concomitant]
     Route: 065
     Dates: start: 20111201, end: 20120201
  12. VINCRISTINE [Suspect]
     Indication: DIFFUSE LARGE B-CELL LYMPHOMA
     Route: 042
     Dates: start: 20111111
  13. METFORMIN HYDROCHLORIDE [Concomitant]
     Indication: TYPE 2 DIABETES MELLITUS
     Route: 065
  14. PREDNISOLONE [Suspect]
     Indication: DIFFUSE LARGE B-CELL LYMPHOMA
     Route: 048
     Dates: start: 20111112

REACTIONS (1)
  - CHOLECYSTITIS [None]
